FAERS Safety Report 8963115 (Version 1)
Quarter: 2012Q4

REPORT INFORMATION
  Report Type: 
  Country: IT (occurrence: IT)
  Receive Date: 20121213
  Receipt Date: 20121213
  Transmission Date: 20130627
  Serious: Yes (Hospitalization)
  Sender: FDA-Public Use
  Company Number: IT-TEVA-374068ISR

PATIENT
  Age: 86 Year
  Sex: Female

DRUGS (7)
  1. CAPTOPRIL [Suspect]
     Indication: HYPERTENSION
     Route: 048
     Dates: start: 20121023, end: 20121031
  2. OMEPRAZOLE [Suspect]
     Indication: PROPHYLAXIS
     Dosage: 20 Milligram Daily;
     Route: 048
     Dates: start: 20121027, end: 20121030
  3. FUROSEMIDE [Suspect]
     Indication: ACUTE RESPIRATORY FAILURE
     Dosage: 40 Milligram Daily;
     Route: 042
     Dates: start: 20121027, end: 20121030
  4. NORMIX [Suspect]
     Indication: DIARRHOEA
     Route: 048
     Dates: start: 20121026, end: 20121030
  5. FOLINA [Concomitant]
     Dosage: soft capsules
  6. SOTALOLO [Concomitant]
  7. ENOXAPARINA [Concomitant]

REACTIONS (3)
  - Monocyte count increased [Recovered/Resolved]
  - Neutrophil count decreased [Recovered/Resolved]
  - White blood cell count decreased [Recovered/Resolved]
